FAERS Safety Report 13333582 (Version 14)
Quarter: 2017Q3

REPORT INFORMATION
  Report Type: Report from Study
  Country: JP (occurrence: JP)
  Receive Date: 20170313
  Receipt Date: 20170802
  Transmission Date: 20171127
  Serious: Yes (Hospitalization)
  Sender: FDA-Public Use
  Company Number: JP-PFIZER INC-2017106708

PATIENT
  Age: 80 Year
  Sex: Male
  Weight: 55.5 kg

DRUGS (16)
  1. SYMBICORT [Concomitant]
     Active Substance: BUDESONIDE\FORMOTEROL FUMARATE DIHYDRATE
     Dosage: 1 DF, UNK
     Dates: start: 201601
  2. ARGAMATE GRANULES [Concomitant]
     Dosage: 300 DF, UNK
     Dates: start: 20170227, end: 20170328
  3. CELECOX [Concomitant]
     Active Substance: CELECOXIB
     Dosage: 100 MG, UNK
     Route: 048
     Dates: start: 20170209
  4. LANSOPRAZOLE. [Concomitant]
     Active Substance: LANSOPRAZOLE
     Dosage: 15 MG, UNK
     Route: 048
     Dates: start: 201601
  5. MUCODYNE [Concomitant]
     Active Substance: CARBOCYSTEINE
     Dosage: 500 MG, UNK
     Route: 048
     Dates: start: 201601
  6. PANTOSIN [Concomitant]
     Active Substance: PANTETHINE
     Dosage: 100 MG, UNK
     Dates: start: 20170105
  7. AZ [Concomitant]
     Dosage: 2 G, UNK
     Dates: start: 20170206
  8. HEPARIN [Concomitant]
     Active Substance: HEPARIN SODIUM
     Dosage: 1 DF, UNK
     Route: 061
     Dates: start: 20170206
  9. CANDESARTAN. [Concomitant]
     Active Substance: CANDESARTAN
     Dosage: 4 MG, UNK
     Route: 048
     Dates: start: 201601
  10. SUNITINIB MALATE. [Suspect]
     Active Substance: SUNITINIB MALATE
     Indication: RENAL CELL CARCINOMA
     Dosage: 50 MG, CYCLIC ONCE DAILY, ORALLY (FOR 4 WEEKS AND THEN OFF TREATMENT FOR 2 WEEKS)
     Route: 048
     Dates: start: 20170206, end: 20170227
  11. PRANLUKAST [Concomitant]
     Active Substance: PRANLUKAST
     Dosage: 112.5 MG, UNK
     Route: 048
     Dates: start: 201601
  12. THEO-DUR [Concomitant]
     Active Substance: THEOPHYLLINE ANHYDROUS
     Dosage: 200 MG, UNK
     Route: 048
     Dates: start: 201601
  13. EXCELASE [Concomitant]
     Active Substance: PANCRELIPASE
     Dosage: 1 DF, UNK
     Route: 048
     Dates: start: 201601
  14. THYRADIN-S [Concomitant]
     Active Substance: LEVOTHYROXINE
     Dosage: 25 UG, UNK
     Dates: start: 20170227, end: 20170329
  15. CALONAL [Concomitant]
     Active Substance: ACETAMINOPHEN
     Dosage: 300 MG, UNK
     Route: 048
     Dates: start: 20170209
  16. MAGNESIUM OXIDE. [Concomitant]
     Active Substance: MAGNESIUM OXIDE
     Dosage: 500 MG, UNK
     Route: 048
     Dates: start: 201601

REACTIONS (2)
  - Pneumonia aspiration [Recovering/Resolving]
  - Dehydration [Recovered/Resolved]

NARRATIVE: CASE EVENT DATE: 20170306
